FAERS Safety Report 5997569-2 (Version None)
Quarter: 2008Q4

REPORT INFORMATION
  Report Type: 
  Country: None (occurrence: None)
  Receive Date: 20081212
  Receipt Date: 20081113
  Transmission Date: 20090506
  Serious: No
  Sender: FDA-Public Use
  Company Number: US-ABBOTT-08P-163-0488199-00

PATIENT
  Sex: Female
  Weight: 108.96 kg

DRUGS (7)
  1. HUMIRA [Suspect]
     Indication: RHEUMATOID ARTHRITIS
     Route: 058
     Dates: start: 20080910
  2. CYCLOBENZAPRINE HCL [Concomitant]
     Indication: FIBROMYALGIA
     Route: 048
  3. METHOTREXATE [Concomitant]
     Indication: RHEUMATOID ARTHRITIS
  4. PREDNISONE TAB [Concomitant]
     Indication: RHEUMATOID ARTHRITIS
  5. ACETAMINOPHEN [Concomitant]
     Indication: PAIN
  6. VIGRAN [Concomitant]
     Indication: VITAMIN SUPPLEMENTATION
  7. CALCIUM [Concomitant]
     Indication: VITAMIN D DECREASED

REACTIONS (1)
  - PAIN [None]
